FAERS Safety Report 15994125 (Version 1)
Quarter: 2019Q1

REPORT INFORMATION
  Report Type: Spontaneous
  Country: IT (occurrence: IT)
  Receive Date: 20190222
  Receipt Date: 20190222
  Transmission Date: 20190418
  Serious: Yes (Other)
  Sender: FDA-Public Use
  Company Number: IT-STRIDES ARCOLAB LIMITED-2019SP001585

PATIENT
  Age: 16 Year
  Sex: Male

DRUGS (8)
  1. TACROLIMUS. [Suspect]
     Active Substance: TACROLIMUS
     Indication: PROPHYLAXIS AGAINST GRAFT VERSUS HOST DISEASE
     Dosage: UNK
     Route: 065
     Dates: end: 201506
  2. DEXAMETHASONE. [Concomitant]
     Active Substance: DEXAMETHASONE
     Indication: ANGIOCENTRIC LYMPHOMA
     Dosage: UNK
     Route: 065
     Dates: start: 201204
  3. MYCOPHENOLATE MOFETIL. [Suspect]
     Active Substance: MYCOPHENOLATE MOFETIL
     Indication: PROPHYLAXIS AGAINST GRAFT VERSUS HOST DISEASE
     Dosage: UNK
     Route: 065
     Dates: start: 2013
  4. DEFERASIROX. [Suspect]
     Active Substance: DEFERASIROX
     Indication: CHELATION THERAPY
     Dosage: UNK
     Route: 065
     Dates: start: 201506
  5. VINCRISTINE [Concomitant]
     Active Substance: VINCRISTINE
     Indication: ANGIOCENTRIC LYMPHOMA
     Dosage: UNK
     Route: 065
     Dates: start: 201204
  6. URSODEOXYCHOLIC ACID [Concomitant]
     Active Substance: URSODIOL
     Indication: PROPHYLAXIS AGAINST GRAFT VERSUS HOST DISEASE
     Dosage: UNK
     Route: 065
  7. RITUXIMAB. [Concomitant]
     Active Substance: RITUXIMAB
     Indication: ANGIOCENTRIC LYMPHOMA
     Dosage: UNK
     Route: 065
     Dates: start: 201204
  8. MYCOPHENOLATE MOFETIL. [Suspect]
     Active Substance: MYCOPHENOLATE MOFETIL
     Dosage: UNK
     Route: 065
     Dates: start: 201505

REACTIONS (16)
  - Hepatic function abnormal [Recovered/Resolved]
  - General physical condition abnormal [Recovered/Resolved]
  - Pallor [Recovered/Resolved]
  - Fanconi syndrome acquired [Recovered/Resolved]
  - Tachypnoea [Recovered/Resolved]
  - Asthenia [Recovered/Resolved]
  - Tachycardia [Recovered/Resolved]
  - Off label use [Unknown]
  - Metabolic acidosis [Recovered/Resolved]
  - Decreased appetite [Recovered/Resolved]
  - Drug ineffective for unapproved indication [Unknown]
  - Abdominal pain [Recovered/Resolved]
  - Renal impairment [Recovered/Resolved]
  - Weight decreased [Recovered/Resolved]
  - Dehydration [Recovered/Resolved]
  - Vomiting [Recovered/Resolved]
